FAERS Safety Report 4897971-6 (Version None)
Quarter: 2006Q1

REPORT INFORMATION
  Report Type: 
  Country: None (occurrence: None)
  Receive Date: 20060201
  Receipt Date: 20051118
  Transmission Date: 20060701
  Serious: Yes (Other)
  Sender: FDA-Public Use
  Company Number: PHEH2005US13169

PATIENT
  Age: 55 Year
  Sex: Female
  Weight: 60.77 kg

DRUGS (3)
  1. ZOMETA [Suspect]
     Indication: METASTASES TO BONE
     Dosage: 4MG Q4WK
     Dates: start: 20020124, end: 20041123
  2. TAMOXIFEN CITRATE [Concomitant]
     Dates: start: 20000101, end: 20050901
  3. AREDIA [Suspect]
     Indication: METASTASES TO BONE
     Dosage: 90MG Q4WKS
     Dates: start: 20000113, end: 20011227

REACTIONS (14)
  - BONE DISORDER [None]
  - DISCOMFORT [None]
  - ERYTHEMA [None]
  - FISTULA [None]
  - GINGIVITIS [None]
  - IDIOPATHIC THROMBOCYTOPENIC PURPURA [None]
  - IMPAIRED HEALING [None]
  - JAW DISORDER [None]
  - OSTEONECROSIS [None]
  - PAIN [None]
  - SINUS DISORDER [None]
  - SOFT TISSUE INFECTION [None]
  - TOOTH EXTRACTION [None]
  - WOUND DEBRIDEMENT [None]
